FAERS Safety Report 17500117 (Version 1)
Quarter: 2020Q1

REPORT INFORMATION
  Report Type: Spontaneous
  Country: US (occurrence: US)
  Receive Date: 20200305
  Receipt Date: 20200305
  Transmission Date: 20200409
  Serious: Yes (Hospitalization, Other)
  Sender: FDA-Public Use
  Company Number: US-AUROBINDO-AUR-APL-2019-005120

PATIENT
  Age: 45 Year
  Sex: Male

DRUGS (2)
  1. RISPERIDONE. [Suspect]
     Active Substance: RISPERIDONE
     Indication: SCHIZOPHRENIA
     Dosage: 3 MILLIGRAM, TWO TIMES A DAY
     Route: 048
  2. INVEGA SUSTENNA [Suspect]
     Active Substance: PALIPERIDONE PALMITATE
     Indication: SCHIZOPHRENIA
     Dosage: 234 MILLIGRAM, 1 MONTH
     Route: 030

REACTIONS (9)
  - Obesity [Unknown]
  - Blood prolactin increased [Unknown]
  - Major depression [Recovered/Resolved]
  - Diabetes mellitus [Unknown]
  - Atrioventricular block first degree [Recovered/Resolved]
  - Gynaecomastia [Unknown]
  - Sexual dysfunction [Unknown]
  - Dysphoria [Recovered/Resolved]
  - Suicidal ideation [Unknown]
